FAERS Safety Report 4472482-0 (Version None)
Quarter: 2004Q4

REPORT INFORMATION
  Report Type: 
  Country: None (occurrence: None)
  Receive Date: 20041007
  Receipt Date: 20040929
  Transmission Date: 20050328
  Serious: Yes (Other)
  Sender: FDA-Public Use
  Company Number: 20035375-C611228-1B

PATIENT
  Age: 24 Year
  Sex: Female
  Weight: 52.6173 kg

DRUGS (1)
  1. SODIUM CHLORIDE 0.9% [Suspect]
     Indication: PLASMAPHERESIS
     Dosage: IV
     Route: 042

REACTIONS (14)
  - ANXIETY [None]
  - ASTHENIA [None]
  - FATIGUE [None]
  - FEELING COLD [None]
  - FLUSHING [None]
  - HYPERVENTILATION [None]
  - MUSCLE TIGHTNESS [None]
  - PALLOR [None]
  - PANIC REACTION [None]
  - PARAESTHESIA [None]
  - PARAESTHESIA ORAL [None]
  - RESPIRATION ABNORMAL [None]
  - TETANY [None]
  - VISION BLURRED [None]
